FAERS Safety Report 21126812 (Version 1)
Quarter: 2022Q3

REPORT INFORMATION
  Report Type: Spontaneous
  Country: US (occurrence: None)
  Receive Date: 20220725
  Receipt Date: 20220725
  Transmission Date: 20221027
  Serious: No
  Sender: FDA-Public Use
  Company Number: None

PATIENT
  Age: 82 Year
  Sex: Male

DRUGS (20)
  1. ABIRATERONE [Suspect]
     Active Substance: ABIRATERONE
     Indication: Prostate cancer
     Dosage: FREQUENCY : DAILY;?
     Route: 048
  2. AMOXICILLIN [Concomitant]
     Active Substance: AMOXICILLIN
  3. AMOXICILLIN\CLAVULANATE POTASSIUM [Concomitant]
     Active Substance: AMOXICILLIN\CLAVULANATE POTASSIUM
  4. CALCIUM CARBONATE [Concomitant]
     Active Substance: CALCIUM CARBONATE
  5. CLOPIDOGREL BISULFATE [Concomitant]
     Active Substance: CLOPIDOGREL BISULFATE
  6. SENNA DORZOLAMIDE HCL [Concomitant]
  7. FLOMAX [Concomitant]
     Active Substance: TAMSULOSIN HYDROCHLORIDE
  8. IBUPROFEN [Concomitant]
     Active Substance: IBUPROFEN
  9. LAGEVRIO [Concomitant]
     Active Substance: MOLNUPIRAVIR
  10. LATANOPROST [Concomitant]
     Active Substance: LATANOPROST
  11. LOVASTATIN [Concomitant]
     Active Substance: LOVASTATIN
  12. METAMUCIL [Concomitant]
  13. METOPROLOL TARTRATE [Concomitant]
     Active Substance: METOPROLOL TARTRATE
  14. MIRALAX [Concomitant]
     Active Substance: POLYETHYLENE GLYCOL 3350
  15. ONE-A-DAY MENS 50+ [Concomitant]
  16. PREDNISONE [Concomitant]
     Active Substance: PREDNISONE
  17. VITAMIN B12 [Concomitant]
     Active Substance: CYANOCOBALAMIN
  18. VITAMIN C [Concomitant]
     Active Substance: ASCORBIC ACID
  19. VITAMIN D3 [Concomitant]
     Active Substance: CHOLECALCIFEROL
  20. ZINC [Concomitant]
     Active Substance: ZINC

REACTIONS (1)
  - COVID-19 [None]
